FAERS Safety Report 25235595 (Version 1)
Quarter: 2025Q2

REPORT INFORMATION
  Report Type: Spontaneous
  Country: RU (occurrence: RU)
  Receive Date: 20250424
  Receipt Date: 20250424
  Transmission Date: 20250717
  Serious: Yes (Death, Other)
  Sender: ALEXION PHARMACEUTICALS
  Company Number: RU-ASTRAZENECA-202504RUS018307RU

PATIENT
  Weight: 58 kg

DRUGS (1)
  1. TAGRISSO [Suspect]
     Active Substance: OSIMERTINIB
     Indication: Adenocarcinoma

REACTIONS (2)
  - Cerebrovascular disorder [Fatal]
  - Malignant neoplasm progression [Unknown]
